FAERS Safety Report 14453927 (Version 1)
Quarter: 2018Q1

REPORT INFORMATION
  Report Type: Spontaneous
  Country: US (occurrence: US)
  Receive Date: 20180129
  Receipt Date: 20180129
  Transmission Date: 20180509
  Serious: Yes (Other)
  Sender: FDA-Public Use
  Company Number: US-TEVA-2018-US-848480

PATIENT
  Age: 4 Month
  Sex: Female

DRUGS (1)
  1. CEFALEXIN [Suspect]
     Active Substance: CEPHALEXIN
     Indication: EAR INFECTION
     Route: 065
     Dates: start: 20180105

REACTIONS (4)
  - Diarrhoea [Unknown]
  - Vomiting projectile [Unknown]
  - Drug administered to patient of inappropriate age [Unknown]
  - Haematochezia [Unknown]

NARRATIVE: CASE EVENT DATE: 20180106
